FAERS Safety Report 5862070-3 (Version None)
Quarter: 2008Q3

REPORT INFORMATION
  Report Type: 
  Country: None (occurrence: None)
  Receive Date: 20080827
  Receipt Date: 20080827
  Transmission Date: 20090109
  Serious: Yes (Other)
  Sender: FDA-Public Use
  Company Number: None

PATIENT
  Age: 82 Year
  Sex: Male
  Weight: 63.5036 kg

DRUGS (1)
  1. TRANSDERM SCOP [Suspect]
     Indication: MOTION SICKNESS
     Dosage: 1 PATCH ONCE TRANSDERMAL
     Route: 062
     Dates: start: 20080818, end: 20080819

REACTIONS (3)
  - BALANCE DISORDER [None]
  - GAIT DISTURBANCE [None]
  - VERTIGO [None]
